APPROVED DRUG PRODUCT: EPLERENONE
Active Ingredient: EPLERENONE
Strength: 25MG
Dosage Form/Route: TABLET;ORAL
Application: A206922 | Product #001 | TE Code: AB
Applicant: ACCORD HEALTHCARE INC
Approved: Jul 13, 2017 | RLD: No | RS: No | Type: RX